FAERS Safety Report 22871493 (Version 2)
Quarter: 2023Q4

REPORT INFORMATION
  Report Type: Spontaneous
  Country: US (occurrence: US)
  Receive Date: 20230828
  Receipt Date: 20231020
  Transmission Date: 20240109
  Serious: Yes (Other)
  Sender: FDA-Public Use
  Company Number: US-APELLIS PHARMACEUTICALS-APL-2023-002759

PATIENT
  Age: 81 Year
  Sex: Male

DRUGS (4)
  1. SYFOVRE [Suspect]
     Active Substance: PEGCETACOPLAN
     Indication: Product used for unknown indication
     Dosage: OD
     Dates: start: 20230322
  2. SYFOVRE [Suspect]
     Active Substance: PEGCETACOPLAN
     Dosage: OS
     Dates: start: 20230322
  3. SYFOVRE [Suspect]
     Active Substance: PEGCETACOPLAN
     Dosage: OD
     Dates: start: 20230601
  4. SYFOVRE [Suspect]
     Active Substance: PEGCETACOPLAN
     Dosage: OS
     Dates: start: 20230601

REACTIONS (2)
  - Visual impairment [Not Recovered/Not Resolved]
  - Vitritis [Recovering/Resolving]

NARRATIVE: CASE EVENT DATE: 20230101
